FAERS Safety Report 10342942 (Version 2)
Quarter: 2014Q3

REPORT INFORMATION
  Report Type: Spontaneous
  Country: BR (occurrence: BR)
  Receive Date: 20140725
  Receipt Date: 20140725
  Transmission Date: 20150326
  Serious: Yes (Other)
  Sender: FDA-Public Use
  Company Number: BR-PFIZER INC-2014197892

PATIENT
  Sex: Female

DRUGS (4)
  1. LYRICA [Suspect]
     Active Substance: PREGABALIN
     Indication: PAIN IN EXTREMITY
     Dosage: EVERY 12 HOURS (IN THE MORNING AND AT NIGHT)
     Route: 048
     Dates: start: 20140614
  2. LYRICA [Suspect]
     Active Substance: PREGABALIN
     Indication: ARTHRALGIA
  3. FELDENE [Concomitant]
     Active Substance: PIROXICAM
     Indication: PAIN
     Dosage: UNK
  4. LYRICA [Suspect]
     Active Substance: PREGABALIN
     Indication: SCIATIC NERVE NEUROPATHY

REACTIONS (3)
  - Drug ineffective [Not Recovered/Not Resolved]
  - Bedridden [Not Recovered/Not Resolved]
  - Meniscus injury [Unknown]

NARRATIVE: CASE EVENT DATE: 2014
